FAERS Safety Report 7185682-6 (Version None)
Quarter: 2010Q4

REPORT INFORMATION
  Report Type: 
  Country: None (occurrence: None)
  Receive Date: 20101222
  Receipt Date: 20100607
  Transmission Date: 20110411
  Serious: No
  Sender: FDA-Public Use
  Company Number: US-AMGEN-TCS417083

PATIENT

DRUGS (2)
  1. ENBREL [Suspect]
     Indication: RHEUMATOID ARTHRITIS
     Dosage: 50 MG, QWK
     Route: 058
     Dates: start: 20061101
  2. ENBREL [Suspect]
     Indication: PSORIASIS

REACTIONS (4)
  - ASTHMA [None]
  - DECREASED APPETITE [None]
  - PSORIASIS [None]
  - WEIGHT INCREASED [None]
